FAERS Safety Report 8574515-9 (Version None)
Quarter: 2012Q3

REPORT INFORMATION
  Report Type: 
  Country: None (occurrence: None)
  Receive Date: 20120806
  Receipt Date: 20120727
  Transmission Date: 20120928
  Serious: Yes (Other)
  Sender: FDA-Public Use
  Company Number: JP-GILEAD-2012-0059159

PATIENT
  Age: 63 Year
  Sex: Male

DRUGS (2)
  1. LAMIVUDINE [Concomitant]
     Indication: HEPATITIS B
     Route: 048
  2. HEPSERA [Suspect]
     Indication: HEPATITIS B
     Route: 048

REACTIONS (1)
  - OSTEOMALACIA [None]
